FAERS Safety Report 7889166-9 (Version None)
Quarter: 2011Q4

REPORT INFORMATION
  Report Type: 
  Country: None (occurrence: None)
  Receive Date: 20111103
  Receipt Date: 20111101
  Transmission Date: 20120403
  Serious: Yes (Death)
  Sender: FDA-Public Use
  Company Number: US-PFIZER INC-2011245084

PATIENT
  Sex: Male
  Weight: 98.866 kg

DRUGS (2)
  1. ALPRAZOLAM [Suspect]
     Dosage: UNK
     Dates: start: 20090228
  2. HYDROMORPHONE [Suspect]
     Dosage: UNK
     Dates: start: 20090228

REACTIONS (1)
  - TOXICITY TO VARIOUS AGENTS [None]
